FAERS Safety Report 24826788 (Version 1)
Quarter: 2025Q1

REPORT INFORMATION
  Report Type: Report from Study
  Country: BR (occurrence: BR)
  Receive Date: 20250109
  Receipt Date: 20250109
  Transmission Date: 20250408
  Serious: Yes (Other)
  Sender: BOEHRINGER INGELHEIM
  Company Number: BR-BoehringerIngelheim-2025-BI-000354

PATIENT
  Age: 54 Year
  Sex: Male

DRUGS (4)
  1. JARDIANCE [Suspect]
     Active Substance: EMPAGLIFLOZIN
     Indication: Diabetes mellitus
     Dosage: 1 TIME A DAY IN THE MORNING.
     Route: 048
     Dates: start: 2021, end: 2024
  2. JARDIANCE [Suspect]
     Active Substance: EMPAGLIFLOZIN
     Indication: Cardiac disorder
     Dosage: 1 TIME A DAY IN THE MORNING.
     Route: 048
     Dates: start: 2024, end: 202406
  3. GLYXAMBI [Suspect]
     Active Substance: EMPAGLIFLOZIN\LINAGLIPTIN
     Indication: Diabetes mellitus
     Dosage: FORM STRENGTH: 25 MILLIGRAMS/5 MILLIGRAMS. ? 1 TIME A DAY IN THE MORNING.
     Route: 048
     Dates: start: 2024, end: 2024
  4. GLYXAMBI [Suspect]
     Active Substance: EMPAGLIFLOZIN\LINAGLIPTIN
     Dosage: FORM STRENGTH: 25 MILLIGRAMS/5 MILLIGRAMS. ? 1 TIME A DAY IN THE MORNING.
     Route: 048
     Dates: start: 202406

REACTIONS (7)
  - Myocardial infarction [Unknown]
  - Angina pectoris [Unknown]
  - Catheterisation cardiac [Unknown]
  - Headache [Unknown]
  - Blood glucose decreased [Unknown]
  - Intentional product misuse [Recovered/Resolved]
  - Blood glucose abnormal [Unknown]

NARRATIVE: CASE EVENT DATE: 20210101
